FAERS Safety Report 5523710-1 (Version None)
Quarter: 2007Q4

REPORT INFORMATION
  Report Type: 
  Country: None (occurrence: None)
  Receive Date: 20071121
  Receipt Date: 20071113
  Transmission Date: 20080405
  Serious: Yes (Hospitalization)
  Sender: FDA-Public Use
  Company Number: US-JNJFOC-20071105760

PATIENT
  Sex: Female
  Weight: 88.45 kg

DRUGS (5)
  1. DURAGESIC-100 [Suspect]
     Indication: PAIN
     Route: 062
  2. LORAZEPAM [Concomitant]
     Indication: ANXIETY
     Route: 048
  3. DEPAKOTE [Concomitant]
     Indication: DEPRESSION
     Route: 048
  4. LEXAPRO [Concomitant]
     Indication: DEPRESSION
     Route: 048
  5. UNSPECIFIED PAIN MEDICATIONS [Concomitant]
     Indication: PAIN
     Route: 065

REACTIONS (1)
  - DIVERTICULITIS [None]
